FAERS Safety Report 4557876-7 (Version None)
Quarter: 2005Q1

REPORT INFORMATION
  Report Type: 
  Country: None (occurrence: None)
  Receive Date: 20050121
  Receipt Date: 20030709
  Transmission Date: 20050727
  Serious: No
  Sender: FDA-Public Use
  Company Number: US-BRISTOL-MYERS SQUIBB COMPANY-12322012

PATIENT
  Age: 41 Year
  Sex: Male
  Weight: 68 kg

DRUGS (3)
  1. SERZONE [Suspect]
     Indication: DEPRESSION
     Dosage: INITIAL DOSE: STARTER PACK, 50MG BID FOR 7 DAYS, 100MG BID FOR 7 DAYS, 150MG DAILY FOR 2 DAYS.
     Route: 048
     Dates: start: 20010301, end: 20020101
  2. PAMELOR [Concomitant]
     Dosage: DOSE TAKEN 1-2 TIMES DAILY
  3. COLESTID [Concomitant]
     Dosage: DOSE: 1/2 TABLET TWICE DAILY
     Dates: start: 20020601

REACTIONS (4)
  - EJACULATION DISORDER [None]
  - HEPATIC ENZYME INCREASED [None]
  - HYPERLIPIDAEMIA [None]
  - LIVER TENDERNESS [None]
